FAERS Safety Report 15681576 (Version 5)
Quarter: 2020Q3

REPORT INFORMATION
  Report Type: Report from Study
  Country: ES (occurrence: ES)
  Receive Date: 20181203
  Receipt Date: 20191120
  Transmission Date: 20201105
  Serious: Yes (Death, Hospitalization, Other)
  Sender: FDA-Public Use
  Company Number: ES-PFIZER INC-2018469085

PATIENT
  Age: 47 Year
  Sex: Female

DRUGS (7)
  1. BISOPROLOL [Concomitant]
     Active Substance: BISOPROLOL
     Indication: HYPERTENSION
     Dosage: 2.5 MG, DAILY
     Route: 048
     Dates: start: 20181109
  2. MIRTAZAPINA [Concomitant]
     Active Substance: MIRTAZAPINE
     Indication: ANXIETY
     Dosage: 15 MG, DAILY
     Route: 048
     Dates: start: 20181109
  3. TALAZOPARIB. [Suspect]
     Active Substance: TALAZOPARIB
     Indication: BREAST CANCER METASTATIC
     Dosage: 1 MG, DAILY
     Route: 048
     Dates: start: 20181026, end: 20181108
  4. ENALAPRIL [Concomitant]
     Active Substance: ENALAPRIL
     Indication: HYPERTENSION
     Dosage: 10 MG, DAILY
     Route: 048
  5. OMEPRAZOLE. [Concomitant]
     Active Substance: OMEPRAZOLE
     Indication: PROPHYLAXIS
     Dosage: 20 MG, DAILY
     Route: 048
     Dates: start: 20181109
  6. LEVETIRACETAM. [Concomitant]
     Active Substance: LEVETIRACETAM
     Indication: SEIZURE
     Dosage: 500 MG, 2X/DAY
     Route: 048
     Dates: start: 20181109
  7. LYRICA [Concomitant]
     Active Substance: PREGABALIN
     Indication: PAIN
     Dosage: 75 MG, DAILY
     Route: 048
     Dates: start: 20181109

REACTIONS (7)
  - Thrombotic microangiopathy [Not Recovered/Not Resolved]
  - Platelet count decreased [Not Recovered/Not Resolved]
  - Hypertension [Recovering/Resolving]
  - Haemorrhage intracranial [Fatal]
  - Seizure [Not Recovered/Not Resolved]
  - Anaemia [Unknown]
  - Pancytopenia [Unknown]

NARRATIVE: CASE EVENT DATE: 20181109
